FAERS Safety Report 22001349 (Version 1)
Quarter: 2023Q1

REPORT INFORMATION
  Report Type: Spontaneous
  Country: US (occurrence: None)
  Receive Date: 20230215
  Receipt Date: 20230215
  Transmission Date: 20230417
  Serious: Yes (Hospitalization, Disabling)
  Sender: FDA-Public Use
  Company Number: None

PATIENT
  Age: 6 Year
  Sex: Male
  Weight: 22.2 kg

DRUGS (4)
  1. ENDARI [Suspect]
     Active Substance: GLUTAMINE
     Indication: Sickle cell anaemia with crisis
     Dates: start: 20220302
  2. FOLIC ACID [Concomitant]
     Active Substance: FOLIC ACID
  3. OXYCODONE IMMEDIATE REL [Concomitant]
  4. ENDARI [Suspect]
     Active Substance: GLUTAMINE
     Indication: Prophylaxis

REACTIONS (1)
  - Sickle cell anaemia with crisis [None]

NARRATIVE: CASE EVENT DATE: 20230210
